FAERS Safety Report 21751864 (Version 1)
Quarter: 2022Q4

REPORT INFORMATION
  Report Type: Spontaneous
  Country: US (occurrence: US)
  Receive Date: 20221220
  Receipt Date: 20221220
  Transmission Date: 20230112
  Serious: No
  Sender: FDA-Public Use
  Company Number: US-JNJFOC-20221232955

PATIENT
  Sex: Male

DRUGS (2)
  1. OPSUMIT [Interacting]
     Active Substance: MACITENTAN
     Indication: Product used for unknown indication
     Route: 048
  2. FLUCONAZOLE [Interacting]
     Active Substance: FLUCONAZOLE

REACTIONS (2)
  - Pruritus [Unknown]
  - Drug interaction [Unknown]
